FAERS Safety Report 6112195-2 (Version None)
Quarter: 2009Q1

REPORT INFORMATION
  Report Type: 
  Country: None (occurrence: None)
  Receive Date: 20090310
  Receipt Date: 20090223
  Transmission Date: 20090719
  Serious: Yes (Other)
  Sender: FDA-Public Use
  Company Number: 2009S1003101

PATIENT
  Age: 39 Year
  Sex: Male

DRUGS (3)
  1. GEMFIBROZIL         CAPSULES, USP [Suspect]
     Indication: HYPERTRIGLYCERIDAEMIA
     Dosage: 600 MG; TWICE A DAY; ORAL
     Route: 048
  2. TIAGABINE HCL [Suspect]
     Indication: COMPLEX PARTIAL SEIZURES
     Dosage: 16 MG; 3 TIMES A DAY; ORAL
     Route: 048
  3. CARBAMAZEPINE (CON.) [Concomitant]

REACTIONS (8)
  - ALTERED STATE OF CONSCIOUSNESS [None]
  - ANTICONVULSANT DRUG LEVEL INCREASED [None]
  - ASTHENIA [None]
  - CONFUSIONAL STATE [None]
  - CONVULSION [None]
  - DIZZINESS [None]
  - DRUG INTERACTION [None]
  - LOSS OF CONSCIOUSNESS [None]
